FAERS Safety Report 4325610-1 (Version None)
Quarter: 2004Q1

REPORT INFORMATION
  Report Type: 
  Country: None (occurrence: None)
  Receive Date: 20040324
  Receipt Date: 20040316
  Transmission Date: 20041129
  Serious: Yes (Death)
  Sender: FDA-Public Use
  Company Number: 163-20785-04020185 (0)

PATIENT
  Age: 79 Year
  Sex: Male

DRUGS (1)
  1. THALOMID [Suspect]
     Indication: METASTATIC RENAL CELL CARCINOMA
     Dosage: 200 MG, QD, ORAL
     Route: 048
     Dates: start: 20031110, end: 20031224

REACTIONS (2)
  - FLUID RETENTION [None]
  - RESPIRATORY FAILURE [None]
